FAERS Safety Report 9431820 (Version 3)
Quarter: 2013Q3

REPORT INFORMATION
  Report Type: Spontaneous
  Country: CA (occurrence: CA)
  Receive Date: 20130731
  Receipt Date: 20130822
  Transmission Date: 20140515
  Serious: Yes (Other)
  Sender: FDA-Public Use
  Company Number: CA-JNJFOC-20130711782

PATIENT
  Age: 40 Year
  Sex: Female

DRUGS (3)
  1. NICODERM CQ [Suspect]
     Indication: SMOKING CESSATION THERAPY
     Dosage: CONSUMER PLACED THE PATCH ON HER ARM AND SWITCHED ARMS AND PLACES ON??HER ARM DAILY
     Route: 061
     Dates: start: 20130708
  2. NICODERM CQ [Suspect]
     Indication: SMOKING CESSATION THERAPY
     Route: 061
     Dates: start: 20130617, end: 20130701
  3. NICODERM STEP 2 CLEAR [Suspect]
     Indication: SMOKING CESSATION THERAPY
     Route: 061
     Dates: start: 20130701, end: 20130707

REACTIONS (10)
  - Nicotine dependence [Not Recovered/Not Resolved]
  - Drug administration error [Unknown]
  - Violence-related symptom [Not Recovered/Not Resolved]
  - Hyperhidrosis [Not Recovered/Not Resolved]
  - Agitation [Not Recovered/Not Resolved]
  - Fatigue [Not Recovered/Not Resolved]
  - Dysgeusia [Not Recovered/Not Resolved]
  - Insomnia [Not Recovered/Not Resolved]
  - Drug ineffective [Not Recovered/Not Resolved]
  - Nervousness [Unknown]
